FAERS Safety Report 9269409 (Version 3)
Quarter: 2013Q2

REPORT INFORMATION
  Report Type: Report from Study
  Country: DE (occurrence: DE)
  Receive Date: 20130503
  Receipt Date: 20130515
  Transmission Date: 20140414
  Serious: Yes (Hospitalization)
  Sender: FDA-Public Use
  Company Number: DE-ROCHE-1217889

PATIENT
  Age: 83 Year
  Sex: Male
  Weight: 88 kg

DRUGS (6)
  1. RITUXIMAB [Suspect]
     Indication: MANTLE CELL LYMPHOMA
     Route: 065
     Dates: start: 20130228, end: 20130414
  2. RITUXIMAB [Suspect]
     Route: 065
     Dates: start: 20130321, end: 20130321
  3. ARA-C [Suspect]
     Indication: MANTLE CELL LYMPHOMA
     Route: 065
     Dates: start: 20130301, end: 20130413
  4. ARA-C [Suspect]
     Route: 065
     Dates: start: 20130322, end: 20130323
  5. DEXAMETHASONE [Suspect]
     Indication: MANTLE CELL LYMPHOMA
     Route: 065
     Dates: start: 20130228, end: 20130414
  6. DEXAMETHASONE [Suspect]
     Dosage: 40 MG ABSOLUTE
     Route: 065
     Dates: start: 20130321, end: 20130324

REACTIONS (2)
  - Syncope [Recovered/Resolved]
  - Dementia [Recovered/Resolved]
